FAERS Safety Report 21746627 (Version 1)
Quarter: 2022Q4

REPORT INFORMATION
  Report Type: Spontaneous
  Country: PT (occurrence: PT)
  Receive Date: 20221219
  Receipt Date: 20221219
  Transmission Date: 20230112
  Serious: Yes (Hospitalization, Other)
  Sender: FDA-Public Use
  Company Number: PT-ENDO PHARMACEUTICALS INC-2022-006590

PATIENT
  Age: 53 Year
  Sex: Male

DRUGS (5)
  1. RISPERIDONE [Suspect]
     Active Substance: RISPERIDONE
     Indication: Schizophrenia
     Dosage: 8 MG, DAILY (WAS PROGRESSIVELY INCREASED UP UNTIL 8 MG/DAY
     Route: 065
     Dates: start: 2019
  2. RISPERIDONE [Suspect]
     Active Substance: RISPERIDONE
     Dosage: 3 MG, DAILY (RE-ESTABLISHED AFTER ADMISSION)
     Route: 065
     Dates: start: 201906, end: 2019
  3. RISPERIDONE [Suspect]
     Active Substance: RISPERIDONE
     Dosage: 3 MG, DAILY
     Route: 065
     Dates: end: 201905
  4. HALOPERIDOL [Concomitant]
     Active Substance: HALOPERIDOL
     Indication: Schizophrenia
     Dosage: 150 MG, MONTHLY
     Route: 065
     Dates: start: 201906, end: 2019
  5. HALOPERIDOL [Concomitant]
     Active Substance: HALOPERIDOL
     Dosage: 150 MG, MONTHLY
     Route: 065
     Dates: end: 201905

REACTIONS (1)
  - Psychotic disorder [Recovered/Resolved]

NARRATIVE: CASE EVENT DATE: 20190601
